FAERS Safety Report 17515403 (Version 1)
Quarter: 2020Q1

REPORT INFORMATION
  Report Type: Spontaneous
  Country: US (occurrence: US)
  Receive Date: 20200309
  Receipt Date: 20200309
  Transmission Date: 20200409
  Serious: No
  Sender: FDA-Public Use
  Company Number: US-ASTRAZENECA-2020SE33850

PATIENT
  Age: 50 Year
  Sex: Male

DRUGS (2)
  1. BYDUREON BCISE [Suspect]
     Active Substance: EXENATIDE
     Indication: TYPE 2 DIABETES MELLITUS
     Route: 058
     Dates: start: 202002
  2. METFORMIN [Concomitant]
     Active Substance: METFORMIN HYDROCHLORIDE

REACTIONS (3)
  - Injection site erythema [Unknown]
  - Injection site warmth [Unknown]
  - Injection site induration [Unknown]
